FAERS Safety Report 9702697 (Version 2)
Quarter: 2013Q4

REPORT INFORMATION
  Report Type: Report from Study
  Country: DE (occurrence: DE)
  Receive Date: 20131121
  Receipt Date: 20131121
  Transmission Date: 20140711
  Serious: Yes (Other)
  Sender: FDA-Public Use
  Company Number: DE-CUBIST PHARMACEUTICALS, INC.-2013CBST000754

PATIENT
  Sex: 0

DRUGS (1)
  1. CUBICIN [Suspect]
     Indication: PRODUCT USED FOR UNKNOWN INDICATION
     Dosage: 3.7 MG/KG, EVERY 24H
     Route: 042
     Dates: start: 20120223, end: 20120227

REACTIONS (9)
  - Body temperature fluctuation [Unknown]
  - White blood cell disorder [Unknown]
  - Coagulopathy [Unknown]
  - Blood creatinine increased [Unknown]
  - Pancytopenia [Unknown]
  - Leukopenia [Unknown]
  - Neutropenia [Unknown]
  - Thrombocytopenia [Not Recovered/Not Resolved]
  - No therapeutic response [Recovered/Resolved]
